FAERS Safety Report 22172692 (Version 1)
Quarter: 2023Q2

REPORT INFORMATION
  Report Type: Spontaneous
  Country: None (occurrence: FR)
  Receive Date: 20230404
  Receipt Date: 20230404
  Transmission Date: 20230722
  Serious: Yes (Other)
  Sender: FDA-Public Use
  Company Number: FR-B.Braun Medical Inc.-2139877

PATIENT
  Age: 77 Year
  Sex: Female

DRUGS (6)
  1. ACETAMINOPHEN [Suspect]
     Active Substance: ACETAMINOPHEN
     Indication: Device related infection
  2. CIPROFLOXACIN [Suspect]
     Active Substance: CIPROFLOXACIN
  3. LOVENOX [Suspect]
     Active Substance: ENOXAPARIN SODIUM
  4. PIPERACILLIN SODIUM\TAZOBACTAM SODIUM [Suspect]
     Active Substance: PIPERACILLIN SODIUM\TAZOBACTAM SODIUM
  5. RIFADIN [Suspect]
     Active Substance: RIFAMPIN
  6. VANCOMYCIN [Suspect]
     Active Substance: VANCOMYCIN

REACTIONS (3)
  - Rash [Recovering/Resolving]
  - Eosinophilia [Recovering/Resolving]
  - Eyelid oedema [Recovering/Resolving]
